FAERS Safety Report 11424136 (Version 1)
Quarter: 2015Q3

REPORT INFORMATION
  Report Type: Report from Study
  Country: DE (occurrence: DE)
  Receive Date: 20150827
  Receipt Date: 20150827
  Transmission Date: 20151125
  Serious: Yes (Other)
  Sender: FDA-Public Use
  Company Number: DE-BAYER-2015-408988

PATIENT
  Age: 45 Year
  Sex: Female
  Weight: 86 kg

DRUGS (3)
  1. ASPIRIN. [Suspect]
     Active Substance: ASPIRIN
     Indication: ARTHRALGIA
  2. ASPIRIN. [Suspect]
     Active Substance: ASPIRIN
     Indication: HEADACHE
  3. ASPIRIN. [Suspect]
     Active Substance: ASPIRIN
     Indication: MIGRAINE
     Dosage: UNK

REACTIONS (1)
  - Overdose [None]
